FAERS Safety Report 7003514-3 (Version None)
Quarter: 2010Q3

REPORT INFORMATION
  Report Type: 
  Country: None (occurrence: None)
  Receive Date: 20100916
  Receipt Date: 20100903
  Transmission Date: 20110219
  Serious: Yes (Other)
  Sender: FDA-Public Use
  Company Number: 1000016223

PATIENT
  Sex: Male

DRUGS (5)
  1. ESCITALOPRAM [Suspect]
     Dosage: 5-10 MG DAILY, ORAL
     Route: 048
     Dates: start: 20100401, end: 20100401
  2. AZILECT [Suspect]
     Indication: PARKINSON'S DISEASE
     Dosage: 1 MG (1 MG, 1 IN 1 D), ORAL
     Route: 048
     Dates: start: 20100201
  3. LIPITOR [Suspect]
     Indication: HYPERCHOLESTEROLAEMIA
     Dosage: 10 MG (10 MG, 1 IN 1 D), ORAL
     Route: 048
  4. SINEMET (SINEMET) (TABLETS) (SINEMET) [Concomitant]
  5. REQUIP (ROPINIROLE HYDROCHLORIDE) (TABLETS) (ROPINIROLE HYDROCHLORIDE) [Concomitant]

REACTIONS (3)
  - DRUG INTERACTION [None]
  - MYOSITIS [None]
  - TENDONITIS [None]
